FAERS Safety Report 4509641-4 (Version None)
Quarter: 2004Q4

REPORT INFORMATION
  Report Type: 
  Country: None (occurrence: None)
  Receive Date: 20041124
  Receipt Date: 20041105
  Transmission Date: 20050328
  Serious: Yes (Hospitalization)
  Sender: FDA-Public Use
  Company Number: US-BRISTOL-MYERS SQUIBB COMPANY-12757704

PATIENT
  Age: 52 Year
  Sex: Male
  Weight: 99 kg

DRUGS (11)
  1. ERBITUX [Suspect]
     Indication: RECTAL CANCER METASTATIC
     Route: 042
     Dates: start: 20041105, end: 20041105
  2. DIPHENHYDRAMINE [Concomitant]
     Indication: PREMEDICATION
     Route: 048
     Dates: start: 20041105, end: 20041105
  3. CIPRO [Concomitant]
     Route: 048
  4. COMPAZINE [Concomitant]
  5. DURAGESIC [Concomitant]
  6. EPOGEN [Concomitant]
     Dosage: INJECTABLE
  7. OXYCODONE HCL [Concomitant]
  8. RANITIDINE [Concomitant]
  9. TERAZOSIN HCL [Concomitant]
  10. ZOFRAN [Concomitant]
  11. ZOSYN [Concomitant]
     Indication: URINARY TRACT INFECTION
     Route: 042

REACTIONS (9)
  - BACTERIAL INFECTION [None]
  - CHEST PAIN [None]
  - CHILLS [None]
  - ELECTROCARDIOGRAM ST SEGMENT ABNORMAL [None]
  - ELECTROCARDIOGRAM ST SEGMENT DEPRESSION [None]
  - ELECTROCARDIOGRAM ST SEGMENT ELEVATION [None]
  - HYPERSENSITIVITY [None]
  - SEPSIS [None]
  - WHITE BLOOD CELL COUNT DECREASED [None]
